FAERS Safety Report 6361184-1 (Version None)
Quarter: 2009Q3

REPORT INFORMATION
  Report Type: 
  Country: None (occurrence: None)
  Receive Date: 20090918
  Receipt Date: 20090914
  Transmission Date: 20100115
  Serious: Yes (Death)
  Sender: FDA-Public Use
  Company Number: ES-TEVA-209184ISR

PATIENT
  Age: 49 Year
  Sex: Male

DRUGS (6)
  1. ETOPOSIDE [Suspect]
     Indication: SMALL CELL LUNG CANCER STAGE UNSPECIFIED
  2. CYCLOPHOSPHAMIDE [Suspect]
     Indication: SMALL CELL LUNG CANCER STAGE UNSPECIFIED
  3. DOXORUBICIN HCL [Suspect]
     Indication: SMALL CELL LUNG CANCER STAGE UNSPECIFIED
  4. CISPLATIN [Suspect]
     Indication: SMALL CELL LUNG CANCER STAGE UNSPECIFIED
  5. VINCRISTINE [Suspect]
     Indication: SMALL CELL LUNG CANCER STAGE UNSPECIFIED
  6. PEGFILGRASTIM [Concomitant]
     Indication: PROPHYLAXIS

REACTIONS (1)
  - HEPATITIS CHOLESTATIC [None]
